FAERS Safety Report 4355538-2 (Version None)
Quarter: 2004Q2

REPORT INFORMATION
  Report Type: 
  Country: None (occurrence: None)
  Receive Date: 20040503
  Receipt Date: 20030903
  Transmission Date: 20050107
  Serious: Yes (Other)
  Sender: FDA-Public Use
  Company Number: US-SHR-03-013954

PATIENT
  Sex: Male

DRUGS (1)
  1. REFLUDAN [Suspect]
     Indication: HEPARIN-INDUCED THROMBOCYTOPENIA
     Dosage: STANDARD DOSE
     Dates: start: 20030801, end: 20030801

REACTIONS (2)
  - ACCIDENTAL OVERDOSE [None]
  - HAEMORRHAGE INTRACRANIAL [None]
